FAERS Safety Report 7009643-2 (Version None)
Quarter: 2010Q3

REPORT INFORMATION
  Report Type: 
  Country: None (occurrence: None)
  Receive Date: 20100903
  Receipt Date: 20100608
  Transmission Date: 20110219
  Serious: No
  Sender: FDA-Public Use
  Company Number: 163-22393-10061194

PATIENT
  Sex: Male

DRUGS (1)
  1. ISTODAX [Suspect]
     Indication: PRODUCT USED FOR UNKNOWN INDICATION
     Dosage: 14 MG/M2 INTRAVENOUS
     Route: 042
     Dates: start: 20100101, end: 20100501

REACTIONS (2)
  - DECREASED APPETITE [None]
  - WEIGHT DECREASED [None]
